FAERS Safety Report 24756106 (Version 3)
Quarter: 2025Q3

REPORT INFORMATION
  Report Type: Report from Study
  Country: US (occurrence: US)
  Receive Date: 20241219
  Receipt Date: 20250809
  Transmission Date: 20251020
  Serious: Yes (Other)
  Sender: ALEXION PHARMACEUTICALS
  Company Number: US-AstraZeneca-CH-00769273A

PATIENT
  Sex: Female
  Weight: 108.4 kg

DRUGS (3)
  1. TEZSPIRE [Suspect]
     Active Substance: TEZEPELUMAB-EKKO
  2. TEZSPIRE [Suspect]
     Active Substance: TEZEPELUMAB-EKKO
  3. BUDESONIDE\FORMOTEROL\GLYCOPYRRONIUM [Suspect]
     Active Substance: BUDESONIDE\FORMOTEROL\GLYCOPYRRONIUM
     Route: 065

REACTIONS (10)
  - Neoplasm malignant [Unknown]
  - Seizure [Unknown]
  - Nasal obstruction [Unknown]
  - Nasal congestion [Unknown]
  - Dyspnoea [Unknown]
  - Wheezing [Unknown]
  - Headache [Unknown]
  - Weight decreased [Unknown]
  - Breath sounds abnormal [Unknown]
  - Pulmonary function test decreased [Unknown]
